FAERS Safety Report 21458836 (Version 1)
Quarter: 2022Q4

REPORT INFORMATION
  Report Type: Spontaneous
  Country: US (occurrence: None)
  Receive Date: 20221013
  Receipt Date: 20221013
  Transmission Date: 20230112
  Serious: Yes (Disabling)
  Sender: FDA-Public Use
  Company Number: None

PATIENT
  Age: 67 Year
  Sex: Male
  Weight: 87.75 kg

DRUGS (10)
  1. REPATHA [Suspect]
     Active Substance: EVOLOCUMAB
     Indication: Blood cholesterol increased
     Dosage: OTHER FREQUENCY : EVERY 2 WEEKS;?
     Route: 058
     Dates: start: 20210701, end: 20221011
  2. AMLODIPINE [Concomitant]
     Active Substance: AMLODIPINE BESYLATE
  3. ZETIA [Concomitant]
     Active Substance: EZETIMIBE
  4. ICOSAPENT [Concomitant]
     Active Substance: ICOSAPENT
  5. ASPIRIN [Concomitant]
     Active Substance: ASPIRIN
  6. lossrtan [Concomitant]
  7. FLONASE [Concomitant]
     Active Substance: FLUTICASONE PROPIONATE
  8. atrovent nasally [Concomitant]
  9. astelin nasally [Concomitant]
  10. DEVICE [Concomitant]
     Active Substance: DEVICE

REACTIONS (11)
  - Influenza like illness [None]
  - Sinus congestion [None]
  - Sinus pain [None]
  - Sleep disorder [None]
  - Fatigue [None]
  - Asthenia [None]
  - Hypoaesthesia [None]
  - Lip swelling [None]
  - Nausea [None]
  - Decreased appetite [None]
  - Myalgia [None]

NARRATIVE: CASE EVENT DATE: 20220710
